FAERS Safety Report 6933435-3 (Version None)
Quarter: 2010Q3

REPORT INFORMATION
  Report Type: 
  Country: None (occurrence: None)
  Receive Date: 20100820
  Receipt Date: 20100810
  Transmission Date: 20110219
  Serious: Yes (Death)
  Sender: FDA-Public Use
  Company Number: GB-JNJFOC-20100803439

PATIENT
  Age: 74 Year
  Sex: Male
  Weight: 88 kg

DRUGS (2)
  1. REMICADE [Suspect]
     Indication: RHEUMATOID ARTHRITIS
     Route: 042
  2. METHOTREXATE [Concomitant]

REACTIONS (5)
  - EMPHYSEMA [None]
  - LUNG CANCER METASTATIC [None]
  - PNEUMONIA ASPIRATION [None]
  - PULMONARY FIBROSIS [None]
  - SEPSIS [None]
